FAERS Safety Report 18598699 (Version 2)
Quarter: 2025Q2

REPORT INFORMATION
  Report Type: Spontaneous
  Country: DE (occurrence: DE)
  Receive Date: 20201210
  Receipt Date: 20250620
  Transmission Date: 20250717
  Serious: Yes (Other)
  Sender: AUROBINDO
  Company Number: DE-ASPEN-GLO2020DE011386

PATIENT
  Age: 46 Year
  Sex: Female

DRUGS (3)
  1. LIDOCAINE [Suspect]
     Active Substance: LIDOCAINE
     Indication: Allergy test
     Route: 065
  2. PRILOCAINE HYDROCHLORIDE [Suspect]
     Active Substance: PRILOCAINE HYDROCHLORIDE
     Indication: Varicose vein operation
     Route: 058
  3. PRILOCAINE HYDROCHLORIDE [Suspect]
     Active Substance: PRILOCAINE HYDROCHLORIDE
     Indication: Local anaesthesia

REACTIONS (3)
  - Type IV hypersensitivity reaction [Unknown]
  - Cross sensitivity reaction [Unknown]
  - Drug hypersensitivity [Unknown]
